FAERS Safety Report 5587541-9 (Version None)
Quarter: 2007Q4

REPORT INFORMATION
  Report Type: 
  Country: None (occurrence: None)
  Receive Date: 20071210
  Receipt Date: 20070314
  Transmission Date: 20080405
  Serious: Yes (Other)
  Sender: FDA-Public Use
  Company Number: 2007020935

PATIENT
  Age: 84 Year
  Sex: Female
  Weight: 58.1 kg

DRUGS (2)
  1. ARTHROTEC [Suspect]
     Indication: ARTHRITIS
     Dosage: (50 MG)
     Dates: start: 19980101, end: 20070131
  2. ACETAMINOPHEN [Concomitant]

REACTIONS (1)
  - RENAL INJURY [None]
